FAERS Safety Report 9561923 (Version 1)
Quarter: 2013Q3

REPORT INFORMATION
  Report Type: Spontaneous
  Country: JP (occurrence: JP)
  Receive Date: 20130927
  Receipt Date: 20130927
  Transmission Date: 20140515
  Serious: Yes (Other)
  Sender: FDA-Public Use
  Company Number: JP-ASTELLAS-2013JP009861

PATIENT
  Age: 16 Year
  Sex: Female

DRUGS (3)
  1. TACROLIMUS [Suspect]
     Route: 065
  2. CORTICOSTEROID NOS [Concomitant]
     Dosage: UNK
     Route: 065
  3. CORTICOSTEROID NOS [Concomitant]
     Dosage: UNK
     Route: 065

REACTIONS (4)
  - Drug ineffective [Unknown]
  - Lupus nephritis [Recovering/Resolving]
  - Systemic lupus erythematosus [Recovering/Resolving]
  - Thrombotic microangiopathy [Recovering/Resolving]
